FAERS Safety Report 12586348 (Version 1)
Quarter: 2016Q3

REPORT INFORMATION
  Report Type: Report from Study
  Country: US (occurrence: US)
  Receive Date: 20160725
  Receipt Date: 20160725
  Transmission Date: 20161109
  Serious: Yes (Other)
  Sender: FDA-Public Use
  Company Number: US-AMGEN-USASL2016019817

PATIENT
  Age: 56 Year
  Sex: Male

DRUGS (1)
  1. KYPROLIS [Suspect]
     Active Substance: CARFILZOMIB
     Indication: PRODUCT USED FOR UNKNOWN INDICATION
     Dosage: UNK
     Route: 065

REACTIONS (9)
  - Laboratory test abnormal [Unknown]
  - Arthralgia [Unknown]
  - Arthropathy [Unknown]
  - Memory impairment [Unknown]
  - Pain [Not Recovered/Not Resolved]
  - Posture abnormal [Unknown]
  - Gait disturbance [Unknown]
  - Back pain [Not Recovered/Not Resolved]
  - Pain in extremity [Unknown]

NARRATIVE: CASE EVENT DATE: 201603
